FAERS Safety Report 7154625-3 (Version None)
Quarter: 2010Q4

REPORT INFORMATION
  Report Type: 
  Country: None (occurrence: None)
  Receive Date: 20101214
  Receipt Date: 20091111
  Transmission Date: 20110411
  Serious: No
  Sender: FDA-Public Use
  Company Number: US-AMGEN-KDL371634

PATIENT

DRUGS (12)
  1. ENBREL [Suspect]
     Indication: RHEUMATOID ARTHRITIS
     Dosage: 50 MG, QWK
     Route: 058
     Dates: start: 20081201
  2. METHOTREXATE [Concomitant]
     Dosage: UNK UNK, UNK
  3. EUGYNON [Concomitant]
  4. CITALOPRAM HYDROBROMIDE [Concomitant]
  5. MULTI-VITAMINS [Concomitant]
  6. FOLIC ACID [Concomitant]
  7. DIPHENHYDRAMINE HYDROCHLORIDE [Concomitant]
  8. TERBINAFINE HCL [Concomitant]
  9. NABUMETONE [Concomitant]
  10. XOPENEX [Concomitant]
  11. ACETAMINOPHEN [Concomitant]
  12. CETIRIZINE HYDROCHLORIDE [Concomitant]
     Dosage: UNK UNK, UNK

REACTIONS (6)
  - BURNING SENSATION [None]
  - ERYTHEMA [None]
  - FEELING HOT [None]
  - HYPERSENSITIVITY [None]
  - RASH PRURITIC [None]
  - URTICARIA [None]
